FAERS Safety Report 6606524-0 (Version None)
Quarter: 2010Q1

REPORT INFORMATION
  Report Type: 
  Country: None (occurrence: None)
  Receive Date: 20100226
  Receipt Date: 20100224
  Transmission Date: 20100710
  Serious: Yes (Hospitalization, Disabling)
  Sender: FDA-Public Use
  Company Number: PHHY2010US02238

PATIENT
  Sex: Female
  Weight: 82 kg

DRUGS (4)
  1. FEMARA [Suspect]
     Dosage: 2.5 UNK, UNK
     Route: 048
     Dates: start: 20090702
  2. NORVASC [Concomitant]
     Indication: HYPERTENSION
     Dosage: 5 G, QD
     Route: 048
  3. DIOVAN [Concomitant]
     Indication: HYPERTENSION
     Dosage: 160/25 QD
     Route: 048
  4. TOPROL-XL [Concomitant]
     Indication: HYPERTENSION
     Dosage: 50 MG, QD
     Route: 048

REACTIONS (7)
  - ARTHRALGIA [None]
  - BALANCE DISORDER [None]
  - FALL [None]
  - FLUID RETENTION [None]
  - FRACTURE [None]
  - JOINT SWELLING [None]
  - LOWER LIMB FRACTURE [None]
